FAERS Safety Report 7689808-7 (Version None)
Quarter: 2011Q3

REPORT INFORMATION
  Report Type: 
  Country: None (occurrence: None)
  Receive Date: 20110818
  Receipt Date: 20110809
  Transmission Date: 20111222
  Serious: Yes (Hospitalization)
  Sender: FDA-Public Use
  Company Number: FR-BIOGENIDEC-2010BI016092

PATIENT
  Age: 25 Year
  Sex: Female

DRUGS (8)
  1. FLAVOXATE [Concomitant]
  2. LACTULOSE [Concomitant]
  3. BOTULINUM TOXIN [Concomitant]
     Route: 042
  4. TYSABRI [Suspect]
     Route: 042
     Dates: start: 20100126
  5. TYSABRI [Suspect]
     Indication: MULTIPLE SCLEROSIS
     Route: 042
     Dates: start: 20070730, end: 20091126
  6. FLUOXETINE [Concomitant]
     Dates: start: 20091109
  7. OXYBUTYNINE [Concomitant]
  8. CHARCOAL [Concomitant]

REACTIONS (1)
  - PRESYNCOPE [None]
